FAERS Safety Report 10013347 (Version 1)
Quarter: 2014Q1

REPORT INFORMATION
  Report Type: Spontaneous
  Country: US (occurrence: US)
  Receive Date: 20140314
  Receipt Date: 20140314
  Transmission Date: 20141002
  Serious: No
  Sender: FDA-Public Use
  Company Number: US-PFIZER INC-2014074785

PATIENT
  Age: 73 Year
  Sex: Female
  Weight: 70.3 kg

DRUGS (1)
  1. GABAPENTIN [Suspect]
     Indication: PAIN
     Dosage: UNK
     Dates: start: 2013

REACTIONS (1)
  - Drug ineffective [Unknown]
